FAERS Safety Report 10905763 (Version 1)
Quarter: 2015Q1

REPORT INFORMATION
  Report Type: Report from Study
  Country: US (occurrence: US)
  Receive Date: 20150311
  Receipt Date: 20150311
  Transmission Date: 20150721
  Serious: Yes (Death)
  Sender: FDA-Public Use
  Company Number: US-SANOFI-AVENTIS-2012SA067702

PATIENT
  Age: 64 Year
  Sex: Male
  Weight: 75 kg

DRUGS (7)
  1. PLAVIX [Suspect]
     Active Substance: CLOPIDOGREL BISULFATE
     Indication: ANTIPLATELET THERAPY
     Route: 048
     Dates: start: 20101014
  2. ASPIRIN. [Suspect]
     Active Substance: ASPIRIN
     Indication: ANTIPLATELET THERAPY
  3. ATORVASTATIN [Concomitant]
     Active Substance: ATORVASTATIN
  4. ALL OTHER THERAPEUTIC PRODUCTS [Suspect]
     Active Substance: UNSPECIFIED INGREDIENT
     Indication: CORONARY ARTERY DISEASE
     Dates: start: 20101013, end: 20101013
  5. ASPIRIN. [Suspect]
     Active Substance: ASPIRIN
     Indication: ANTIPLATELET THERAPY
  6. CARVEDILOL. [Concomitant]
     Active Substance: CARVEDILOL
  7. BLINDED THERAPY [Suspect]
     Active Substance: INVESTIGATIONAL PRODUCT
     Indication: ANTIPLATELET THERAPY
     Route: 065
     Dates: start: 20110923

REACTIONS (1)
  - Death [Fatal]

NARRATIVE: CASE EVENT DATE: 20120311
